FAERS Safety Report 24417245 (Version 1)
Quarter: 2024Q4

REPORT INFORMATION
  Report Type: Spontaneous
  Country: US (occurrence: US)
  Receive Date: 20241009
  Receipt Date: 20241009
  Transmission Date: 20250115
  Serious: No
  Sender: AMGEN
  Company Number: US-AMGEN-USASP2024196285

PATIENT

DRUGS (1)
  1. PENNSAID [Suspect]
     Active Substance: DICLOFENAC SODIUM
     Indication: Musculoskeletal pain
     Dosage: 1.5 PERCENT, BID, FOR 1 WEEK
     Route: 061

REACTIONS (24)
  - Haemorrhage [Unknown]
  - Tachycardia [Unknown]
  - Hypertension [Unknown]
  - Gait disturbance [Unknown]
  - Off label use [Unknown]
  - Pruritus [Unknown]
  - Rash [Unknown]
  - Hypoaesthesia [Unknown]
  - Xeroderma [Unknown]
  - Cough [Unknown]
  - Pain [Unknown]
  - Drug ineffective [Unknown]
  - Tinnitus [Unknown]
  - Swelling [Unknown]
  - Headache [Unknown]
  - Dysgeusia [Unknown]
  - Adverse event [Unknown]
  - Nasal congestion [Unknown]
  - Rhinorrhoea [Unknown]
  - Muscle spasms [Unknown]
  - Abnormal dreams [Unknown]
  - Dizziness [Unknown]
  - Nausea [Unknown]
  - Diarrhoea [Unknown]
